FAERS Safety Report 10207775 (Version 1)
Quarter: 2014Q2

REPORT INFORMATION
  Report Type: Spontaneous
  Country: US (occurrence: US)
  Receive Date: 20140530
  Receipt Date: 20140530
  Transmission Date: 20141212
  Serious: No
  Sender: FDA-Public Use
  Company Number: US-GLAXOSMITHKLINE-A1058689A

PATIENT
  Age: 7 Year
  Sex: Male

DRUGS (2)
  1. VENTOLIN [Suspect]
     Indication: COUGH
     Route: 055
     Dates: start: 20140114
  2. MUCINEX [Concomitant]

REACTIONS (2)
  - Cough [Unknown]
  - Drug ineffective [Unknown]
